FAERS Safety Report 15799170 (Version 1)
Quarter: 2019Q1

REPORT INFORMATION
  Report Type: Spontaneous
  Country: US (occurrence: US)
  Receive Date: 20190108
  Receipt Date: 20190108
  Transmission Date: 20190417
  Serious: No
  Sender: FDA-Public Use
  Company Number: US-JAZZ-2013-US-002310

PATIENT
  Age: 66 Year
  Sex: Male

DRUGS (8)
  1. XYREM [Suspect]
     Active Substance: SODIUM OXYBATE
     Indication: CATAPLEXY
     Dosage: 3 G,BID
     Route: 048
     Dates: start: 2013, end: 2013
  2. XYREM [Suspect]
     Active Substance: SODIUM OXYBATE
     Dosage: 3.75 G,BID
     Route: 048
     Dates: start: 2013, end: 2013
  3. NUVIGIL [Concomitant]
     Active Substance: ARMODAFINIL
     Indication: SOMNOLENCE
     Dosage: 150 MG, QD
     Route: 048
  4. XYREM [Suspect]
     Active Substance: SODIUM OXYBATE
     Dosage: 3.75 G,BID
     Route: 048
     Dates: start: 2013
  5. XYREM [Suspect]
     Active Substance: SODIUM OXYBATE
     Dosage: 4.5 G BID
     Route: 048
     Dates: start: 2013, end: 2013
  6. XYREM [Suspect]
     Active Substance: SODIUM OXYBATE
     Indication: NARCOLEPSY
     Dosage: 2.25 G, BID
     Route: 048
     Dates: start: 20130823, end: 2013
  7. NUVIGIL [Concomitant]
     Active Substance: ARMODAFINIL
     Dosage: 37.5 UNK, UNK
     Route: 048
     Dates: start: 20131006, end: 20131006
  8. NUVIGIL [Concomitant]
     Active Substance: ARMODAFINIL
     Dosage: 150 MG,QD
     Route: 048
     Dates: start: 20131007

REACTIONS (6)
  - Injury [Unknown]
  - Condition aggravated [Not Recovered/Not Resolved]
  - Night sweats [Not Recovered/Not Resolved]
  - Fatigue [Unknown]
  - Wrong technique in product usage process [Unknown]
  - Binge eating [Not Recovered/Not Resolved]

NARRATIVE: CASE EVENT DATE: 2013
